FAERS Safety Report 26209875 (Version 1)
Quarter: 2025Q4

REPORT INFORMATION
  Report Type: Spontaneous
  Country: JP (occurrence: JP)
  Receive Date: 20251229
  Receipt Date: 20251229
  Transmission Date: 20260117
  Serious: Yes (Hospitalization)
  Sender: MERCK SHARP & DOHME LLC
  Company Number: JP-009507513-2364166

PATIENT
  Age: 60 Year
  Sex: Female

DRUGS (3)
  1. PEMBROLIZUMAB [Suspect]
     Active Substance: PEMBROLIZUMAB
     Indication: Triple negative breast cancer
     Route: 065
  2. PACLITAXEL [Concomitant]
     Active Substance: PACLITAXEL
     Indication: Triple negative breast cancer
     Route: 065
  3. CARBOPLATIN [Concomitant]
     Active Substance: CARBOPLATIN
     Indication: Triple negative breast cancer
     Route: 065

REACTIONS (1)
  - Liver disorder [Unknown]
